FAERS Safety Report 8950351 (Version 1)
Quarter: 2012Q4

REPORT INFORMATION
  Report Type: Spontaneous
  Country: US (occurrence: None)
  Receive Date: 20121130
  Receipt Date: 20121130
  Transmission Date: 20130627
  Serious: No
  Sender: FDA-Public Use
  Company Number: None

PATIENT
  Age: 25 Year
  Sex: Male
  Weight: 62.6 kg

DRUGS (1)
  1. ACYCLOVIR [Suspect]
     Indication: COLD SORES
     Dates: start: 20110920, end: 20111020

REACTIONS (2)
  - Headache [None]
  - Muscle twitching [None]
